FAERS Safety Report 11461939 (Version 1)
Quarter: 2015Q3

REPORT INFORMATION
  Report Type: Spontaneous
  Country: US (occurrence: US)
  Receive Date: 20150831
  Receipt Date: 20150831
  Transmission Date: 20151125
  Serious: No
  Sender: FDA-Public Use
  Company Number: US-ELI_LILLY_AND_COMPANY-US200908001003

PATIENT
  Age: 55 Year
  Sex: Female

DRUGS (5)
  1. METFORMIN [Concomitant]
     Active Substance: METFORMIN HYDROCHLORIDE
  2. GLYBURIDE. [Concomitant]
     Active Substance: GLYBURIDE
  3. CYMBALTA [Suspect]
     Active Substance: DULOXETINE HYDROCHLORIDE
     Dosage: 60 MG, DAILY (1/D)
  4. HYDROCHLOROTHIAZIDE. [Concomitant]
     Active Substance: HYDROCHLOROTHIAZIDE
  5. CYMBALTA [Suspect]
     Active Substance: DULOXETINE HYDROCHLORIDE
     Indication: DIABETIC NEUROPATHY
     Dosage: 30 MG, DAILY (1/D)
     Dates: start: 2009

REACTIONS (14)
  - Photopsia [Recovered/Resolved]
  - Hallucination, auditory [Recovered/Resolved]
  - Feeling cold [Recovered/Resolved]
  - Abnormal dreams [Recovered/Resolved]
  - Cold sweat [Recovered/Resolved]
  - Mental impairment [Recovered/Resolved]
  - Influenza like illness [Recovered/Resolved]
  - Body temperature decreased [Recovering/Resolving]
  - Hunger [Recovered/Resolved]
  - Hypoaesthesia [Recovered/Resolved]
  - Tinnitus [Not Recovered/Not Resolved]
  - Affect lability [Recovered/Resolved]
  - Drug withdrawal syndrome [Recovering/Resolving]
  - Intentional product misuse [Unknown]

NARRATIVE: CASE EVENT DATE: 200907
